FAERS Safety Report 8110450-8 (Version None)
Quarter: 2012Q1

REPORT INFORMATION
  Report Type: 
  Country: None (occurrence: None)
  Receive Date: 20120202
  Receipt Date: 20120126
  Transmission Date: 20120608
  Serious: Yes (Other)
  Sender: FDA-Public Use
  Company Number: US-ABBOTT-12P-163-0898582-00

PATIENT
  Sex: Female

DRUGS (3)
  1. IBUPROFEN (ADVIL) [Concomitant]
     Indication: HEADACHE
  2. TRIAMCINOLONE [Concomitant]
     Indication: PSORIASIS
     Dates: end: 20120101
  3. HUMIRA [Suspect]
     Indication: PSORIASIS
     Dates: start: 20110201

REACTIONS (3)
  - BREAST MASS [None]
  - PSORIASIS [None]
  - FIBROADENOMA OF BREAST [None]
